FAERS Safety Report 10490619 (Version 2)
Quarter: 2014Q4

REPORT INFORMATION
  Report Type: Spontaneous
  Country: US (occurrence: US)
  Receive Date: 20141002
  Receipt Date: 20141002
  Transmission Date: 20150528
  Serious: No
  Sender: FDA-Public Use
  Company Number: US-GLAXOSMITHKLINE-A0971494A

PATIENT
  Age: 80 Year
  Sex: Male
  Weight: 86.4 kg

DRUGS (10)
  1. DAPSONE. [Concomitant]
     Active Substance: DAPSONE
  2. CENTRUM MVI [Concomitant]
  3. CLONAZEPAM. [Concomitant]
     Active Substance: CLONAZEPAM
  4. SIMVASTATIN. [Concomitant]
     Active Substance: SIMVASTATIN
  5. CARDURA [Concomitant]
     Active Substance: DOXAZOSIN MESYLATE
  6. FINASTERIDE. [Concomitant]
     Active Substance: FINASTERIDE
  7. ADVAIR HFA [Suspect]
     Active Substance: FLUTICASONE PROPIONATE\SALMETEROL XINAFOATE
     Indication: BRONCHITIS
     Dosage: 1PUFF TWICE PER DAY
     Route: 055
     Dates: start: 2002
  8. SYMBICORT [Suspect]
     Active Substance: BUDESONIDE\FORMOTEROL FUMARATE DIHYDRATE
     Indication: PRODUCT USED FOR UNKNOWN INDICATION
     Route: 065
  9. THYROXIN [Concomitant]
     Active Substance: LEVOTHYROXINE
  10. LEVOTHYROXINE [Concomitant]
     Active Substance: LEVOTHYROXINE

REACTIONS (3)
  - Bronchitis [Recovered/Resolved]
  - Dry mouth [Not Recovered/Not Resolved]
  - Tongue coated [Not Recovered/Not Resolved]

NARRATIVE: CASE EVENT DATE: 2011
